FAERS Safety Report 22113805 (Version 1)
Quarter: 2023Q1

REPORT INFORMATION
  Report Type: Spontaneous
  Country: HU (occurrence: HU)
  Receive Date: 20230320
  Receipt Date: 20230320
  Transmission Date: 20230418
  Serious: Yes (Hospitalization)
  Sender: FDA-Public Use
  Company Number: HU-ASTELLAS-2023US006300

PATIENT
  Sex: Male
  Weight: .99 kg

DRUGS (16)
  1. TACROLIMUS [Suspect]
     Active Substance: TACROLIMUS
     Indication: Renal transplant
     Route: 064
  2. PREDNISOLONE [Concomitant]
     Active Substance: PREDNISOLONE
     Indication: Renal transplant
     Route: 064
  3. FOLIC ACID [Concomitant]
     Active Substance: FOLIC ACID
     Indication: Supplementation therapy
     Dosage: UNK UNK, ONCE DAILY
     Route: 064
  4. LEVOMEFOLATE CALCIUM [Concomitant]
     Active Substance: LEVOMEFOLATE CALCIUM
     Indication: Supplementation therapy
     Dosage: UNK UNK, ONCE DAILY
     Route: 064
  5. DOCONEXENT [Concomitant]
     Active Substance: DOCONEXENT
     Indication: Supplementation therapy
     Dosage: UNK UNK, ONCE DAILY
     Route: 064
  6. IODINE [Concomitant]
     Active Substance: IODINE
     Indication: Supplementation therapy
     Dosage: UNK UNK, ONCE DAILY
     Route: 064
  7. VITAMIN B1 [Concomitant]
     Active Substance: THIAMINE HYDROCHLORIDE
     Indication: Supplementation therapy
     Dosage: UNK UNK, ONCE DAILY
     Route: 064
  8. VITAMIN B2 [Concomitant]
     Active Substance: RIBOFLAVIN
     Indication: Supplementation therapy
     Dosage: UNK UNK, ONCE DAILY
     Route: 064
  9. VITAMIN B6 [Concomitant]
     Active Substance: PYRIDOXINE HYDROCHLORIDE
     Indication: Supplementation therapy
     Dosage: UNK UNK, ONCE DAILY
     Route: 064
  10. VITAMIN B12 [Concomitant]
     Active Substance: CYANOCOBALAMIN
     Indication: Supplementation therapy
     Dosage: UNK UNK, ONCE DAILY
     Route: 064
  11. VITAMIN C [Concomitant]
     Active Substance: ASCORBIC ACID
     Indication: Supplementation therapy
     Dosage: UNK UNK, ONCE DAILY
     Route: 064
  12. VITAMIN D3 [Concomitant]
     Active Substance: CHOLECALCIFEROL
     Indication: Supplementation therapy
     Dosage: UNK UNK, ONCE DAILY
     Route: 064
  13. VITAMIN E [Concomitant]
     Active Substance: .ALPHA.-TOCOPHEROL
     Indication: Supplementation therapy
     Dosage: UNK UNK, ONCE DAILY
     Route: 064
  14. BIOTIN [Concomitant]
     Active Substance: BIOTIN
     Indication: Supplementation therapy
     Dosage: UNK UNK, ONCE DAILY
     Route: 064
  15. NIACIN [Concomitant]
     Active Substance: NIACIN
     Indication: Supplementation therapy
     Dosage: UNK UNK, ONCE DAILY
     Route: 064
  16. PANTOTHENIC ACID [Concomitant]
     Active Substance: PANTOTHENIC ACID
     Indication: Supplementation therapy
     Dosage: UNK UNK, ONCE DAILY
     Route: 064

REACTIONS (4)
  - Low birth weight baby [Recovering/Resolving]
  - Premature baby [Unknown]
  - Foetal exposure during pregnancy [Unknown]
  - Exposure via breast milk [Unknown]
